FAERS Safety Report 8363357-5 (Version None)
Quarter: 2012Q2

REPORT INFORMATION
  Report Type: 
  Country: None (occurrence: None)
  Receive Date: 20120516
  Receipt Date: 20120514
  Transmission Date: 20120825
  Serious: Yes (Life-Threatening, Hospitalization)
  Sender: FDA-Public Use
  Company Number: FR-SANOFI-AVENTIS-2012SA033913

PATIENT
  Age: 61 Year
  Sex: Male

DRUGS (11)
  1. TAMSULOSIN HCL [Concomitant]
  2. AMIODARONE HCL [Concomitant]
  3. PENTOXIFYLLINE [Suspect]
     Indication: CARDIAC VALVE PROSTHESIS USER
     Route: 048
     Dates: end: 20120101
  4. VALSARTAN [Concomitant]
  5. SIMVASTATIN [Concomitant]
  6. CARVEDILOL [Concomitant]
  7. PENTOXIFYLLINE [Suspect]
     Route: 048
     Dates: start: 20120110, end: 20120117
  8. LEVOTHYROXINE SODIUM [Concomitant]
  9. LOVENOX [Suspect]
     Indication: CARDIAC VALVE PROSTHESIS USER
     Route: 058
     Dates: start: 20120106
  10. LASIX [Concomitant]
  11. ALLOPURINOL [Concomitant]

REACTIONS (3)
  - RENAL FAILURE ACUTE [None]
  - ANAEMIA [None]
  - ABDOMINAL WALL HAEMATOMA [None]
